FAERS Safety Report 15793368 (Version 1)
Quarter: 2019Q1

REPORT INFORMATION
  Report Type: Spontaneous
  Country: US (occurrence: US)
  Receive Date: 20190107
  Receipt Date: 20190107
  Transmission Date: 20190417
  Serious: No
  Sender: FDA-Public Use
  Company Number: US-ACLARIS THERAPEUTICS-2018US012392

PATIENT
  Age: 70 Year
  Sex: Female

DRUGS (1)
  1. ESKATA [Suspect]
     Active Substance: HYDROGEN PEROXIDE
     Indication: SKIN LESION
     Dosage: UNK
     Route: 061

REACTIONS (1)
  - Swelling of eyelid [Recovering/Resolving]
